FAERS Safety Report 7408071-5 (Version None)
Quarter: 2011Q2

REPORT INFORMATION
  Report Type: 
  Country: None (occurrence: None)
  Receive Date: 20110412
  Receipt Date: 20110404
  Transmission Date: 20111010
  Serious: Yes (Life-Threatening)
  Sender: FDA-Public Use
  Company Number: GB-SANOFI-AVENTIS-2011SA020410

PATIENT
  Age: 44 Year
  Sex: Female
  Weight: 64 kg

DRUGS (5)
  1. MEBEVERINE [Concomitant]
     Route: 065
  2. DANAZOL [Suspect]
     Indication: BREAST PAIN
     Route: 048
     Dates: start: 20101004, end: 20110128
  3. DIAZEPAM [Concomitant]
     Route: 048
  4. LEVOTHYROXINE [Concomitant]
     Route: 065
  5. FLUOXETINE [Concomitant]
     Route: 048

REACTIONS (1)
  - CHRONIC MYELOID LEUKAEMIA [None]
